FAERS Safety Report 17086722 (Version 1)
Quarter: 2019Q4

REPORT INFORMATION
  Report Type: Spontaneous
  Country: US (occurrence: US)
  Receive Date: 20191128
  Receipt Date: 20191128
  Transmission Date: 20200122
  Serious: Yes (Life-Threatening, Other)
  Sender: FDA-Public Use
  Company Number: US-ALVOGEN-2019-ALVOGEN-102027

PATIENT
  Age: 60 Year
  Sex: Male

DRUGS (1)
  1. BUDESONIDE. [Suspect]
     Active Substance: BUDESONIDE
     Indication: CHRONIC OBSTRUCTIVE PULMONARY DISEASE
     Dosage: RECEIVED A CUMULATIVE DOSE THAT IS TEN-FOLD THE INTENDED DOSE
     Route: 055

REACTIONS (3)
  - Adrenocortical insufficiency acute [Unknown]
  - Overdose [Unknown]
  - Hypothalamic pituitary adrenal axis suppression [Unknown]
